FAERS Safety Report 20076895 (Version 1)
Quarter: 2021Q4

REPORT INFORMATION
  Report Type: Spontaneous
  Country: US (occurrence: US)
  Receive Date: 20211116
  Receipt Date: 20211116
  Transmission Date: 20220304
  Serious: Yes (Other)
  Sender: FDA-Public Use
  Company Number: US-BAYER-2021A249039

PATIENT
  Age: 59 Year
  Sex: Male

DRUGS (1)
  1. NAPROXEN SODIUM [Suspect]
     Active Substance: NAPROXEN SODIUM

REACTIONS (1)
  - Renal papillary necrosis [None]
